FAERS Safety Report 13238580 (Version 1)
Quarter: 2017Q1

REPORT INFORMATION
  Report Type: Spontaneous
  Country: US (occurrence: US)
  Receive Date: 20170216
  Receipt Date: 20170216
  Transmission Date: 20170428
  Serious: No
  Sender: FDA-Public Use
  Company Number: US-ACTAVIS-2016-06122

PATIENT
  Sex: Female

DRUGS (1)
  1. TAMOXIFEN CITRATE (ACTAVIS LABORATORIES FL) [Suspect]
     Active Substance: TAMOXIFEN CITRATE
     Indication: HORMONE SUPPRESSION THERAPY
     Dosage: UNK UNK, UNKNOWN
     Route: 065
     Dates: start: 19960111, end: 19960228

REACTIONS (1)
  - Vomiting [Unknown]
